FAERS Safety Report 9850017 (Version 1)
Quarter: 2014Q1

REPORT INFORMATION
  Report Type: Spontaneous
  Country: US (occurrence: None)
  Receive Date: 20140124
  Receipt Date: 20140124
  Transmission Date: 20141002
  Serious: Yes (Disabling)
  Sender: FDA-Public Use
  Company Number: None

PATIENT
  Age: 93 Year
  Sex: Male

DRUGS (8)
  1. CLOPIDOGREL BISULFATE [Suspect]
     Indication: CEREBROVASCULAR ACCIDENT PROPHYLAXIS
     Route: 048
     Dates: start: 20130604, end: 20130904
  2. CLOPIDOGREL BISULFATE [Suspect]
     Indication: ISCHAEMIC HEART DISEASE PROPHYLAXIS
     Route: 048
     Dates: start: 20130604, end: 20130904
  3. LISINOPRIL [Concomitant]
  4. LOVASTATIN [Concomitant]
  5. LEVOTHYROXINE [Concomitant]
  6. METOPROLOL TARTRATE [Concomitant]
  7. FLAXSEED [Concomitant]
  8. COMPLETE VITAMIN TAB [Concomitant]

REACTIONS (2)
  - Photopsia [None]
  - Visual field defect [None]
